FAERS Safety Report 21479865 (Version 1)
Quarter: 2022Q4

REPORT INFORMATION
  Report Type: Report from Study
  Country: US (occurrence: US)
  Receive Date: 20221019
  Receipt Date: 20221019
  Transmission Date: 20230113
  Serious: Yes (Death, Hospitalization, Other)
  Sender: FDA-Public Use
  Company Number: US-BoehringerIngelheim-2021-BI-119123

PATIENT
  Age: 83 Year
  Sex: Male

DRUGS (2)
  1. OFEV [Suspect]
     Active Substance: NINTEDANIB
     Indication: Idiopathic pulmonary fibrosis
     Route: 048
     Dates: start: 20210728
  2. OFEV [Suspect]
     Active Substance: NINTEDANIB
     Route: 048

REACTIONS (21)
  - Death [Fatal]
  - Pulmonary thrombosis [Not Recovered/Not Resolved]
  - Heart rate increased [Recovered/Resolved]
  - Cardiac disorder [Unknown]
  - Hiccups [Recovered/Resolved]
  - Eructation [Recovered/Resolved]
  - Syncope [Recovered/Resolved]
  - Road traffic accident [Not Recovered/Not Resolved]
  - Chest injury [Unknown]
  - Blood disorder [Unknown]
  - Oxygen saturation abnormal [Not Recovered/Not Resolved]
  - Diarrhoea [Not Recovered/Not Resolved]
  - Dyspnoea [Not Recovered/Not Resolved]
  - Constipation [Unknown]
  - Oxygen saturation decreased [Not Recovered/Not Resolved]
  - Arthralgia [Not Recovered/Not Resolved]
  - Productive cough [Not Recovered/Not Resolved]
  - Dyspnoea exertional [Not Recovered/Not Resolved]
  - Hiccups [Recovering/Resolving]
  - Eructation [Recovering/Resolving]
  - Limb injury [Unknown]

NARRATIVE: CASE EVENT DATE: 20210803
